FAERS Safety Report 4333213-8 (Version None)
Quarter: 2004Q2

REPORT INFORMATION
  Report Type: 
  Country: None (occurrence: None)
  Receive Date: 20040405
  Receipt Date: 20040405
  Transmission Date: 20050107
  Serious: Yes (Disabling)
  Sender: FDA-Public Use
  Company Number: None

PATIENT
  Age: 54 Year
  Sex: Male
  Weight: 99.7913 kg

DRUGS (1)
  1. AMITRIPTYLINE HCL [Suspect]
     Indication: PAIN MANAGEMENT
     Dates: start: 20030117, end: 20030118

REACTIONS (4)
  - EYE PAIN [None]
  - HEART RATE INCREASED [None]
  - TINNITUS [None]
  - VISION BLURRED [None]
